FAERS Safety Report 4570290-3 (Version None)
Quarter: 2005Q1

REPORT INFORMATION
  Report Type: 
  Country: None (occurrence: None)
  Receive Date: 20050202
  Receipt Date: 20050118
  Transmission Date: 20050727
  Serious: Yes (Hospitalization)
  Sender: FDA-Public Use
  Company Number: 8008551

PATIENT
  Age: 21 Year
  Sex: Female

DRUGS (2)
  1. KEPPRA [Suspect]
     Dosage: 2/D PO
     Route: 048
     Dates: start: 20050109
  2. KEPPRA [Suspect]
     Dosage: 2 /D PO
     Route: 048
     Dates: start: 20050117

REACTIONS (11)
  - ALANINE AMINOTRANSFERASE INCREASED [None]
  - ASPARTATE AMINOTRANSFERASE INCREASED [None]
  - BLOOD CREATINE PHOSPHOKINASE INCREASED [None]
  - HEPATIC LESION [None]
  - LYMPHOCYTE COUNT DECREASED [None]
  - MENTAL RETARDATION SEVERITY UNSPECIFIED [None]
  - MICROCYTIC ANAEMIA [None]
  - PYREXIA [None]
  - RASH GENERALISED [None]
  - RASH MACULO-PAPULAR [None]
  - TOXIC SKIN ERUPTION [None]
